FAERS Safety Report 5091763-3 (Version None)
Quarter: 2006Q3

REPORT INFORMATION
  Report Type: 
  Country: None (occurrence: None)
  Receive Date: 20060829
  Receipt Date: 20060510
  Transmission Date: 20061208
  Serious: No
  Sender: FDA-Public Use
  Company Number: US-BRISTOL-MYERS SQUIBB COMPANY-13373683

PATIENT
  Sex: Male
  Weight: 58 kg

DRUGS (8)
  1. ERBITUX [Suspect]
     Indication: COLON CANCER
     Route: 042
     Dates: start: 20060510, end: 20060510
  2. BENADRYL [Concomitant]
     Route: 042
  3. DIGOXIN [Concomitant]
  4. TOPROL-XL [Concomitant]
  5. COUMADIN [Concomitant]
  6. ALDACTONE [Concomitant]
  7. LASIX [Concomitant]
  8. CLINDAMYCIN [Concomitant]
     Dates: start: 20060101

REACTIONS (1)
  - URTICARIA [None]
